FAERS Safety Report 9844802 (Version 1)
Quarter: 2014Q1

REPORT INFORMATION
  Report Type: Spontaneous
  Country: US (occurrence: None)
  Receive Date: 20140122
  Receipt Date: 20140122
  Transmission Date: 20141002
  Serious: Yes (Death)
  Sender: FDA-Public Use
  Company Number: B0960457A

PATIENT
  Age: 50 Year
  Sex: Male

DRUGS (5)
  1. BUPROPION HYDROCHLORIDE [Suspect]
  2. COCAINE [Suspect]
     Route: 048
  3. TRAZODONE [Suspect]
  4. METOPROLOL [Suspect]
  5. SERTRALINE [Suspect]

REACTIONS (1)
  - Drug abuse [None]
